FAERS Safety Report 9476927 (Version 1)
Quarter: 2013Q3

REPORT INFORMATION
  Report Type: Spontaneous
  Country: CA (occurrence: CA)
  Receive Date: 20130826
  Receipt Date: 20130826
  Transmission Date: 20140515
  Serious: Yes (Other)
  Sender: FDA-Public Use
  Company Number: CA-B.I. PHARMACEUTICALS,INC./RIDGEFIELD-2013-CN-01460CN

PATIENT
  Age: 64 Year
  Sex: Female

DRUGS (4)
  1. PRADAXA [Suspect]
     Indication: ATRIAL FIBRILLATION
     Dosage: 220 MG
     Dates: start: 2011
  2. ANGIOTENSIN RECEPTOR BLOCKER [Concomitant]
  3. BETA BLOCKER [Concomitant]
  4. LIPID LOWERING DRUG [Concomitant]

REACTIONS (1)
  - Renal infarct [Recovered/Resolved]
